FAERS Safety Report 15429039 (Version 6)
Quarter: 2021Q3

REPORT INFORMATION
  Report Type: Spontaneous
  Country: US (occurrence: US)
  Receive Date: 20180926
  Receipt Date: 20210908
  Transmission Date: 20211014
  Serious: No
  Sender: FDA-Public Use
  Company Number: US-PFIZER INC-2017400044

PATIENT
  Age: 33 Year
  Sex: Male
  Weight: 122 kg

DRUGS (4)
  1. SOMAVERT [Suspect]
     Active Substance: PEGVISOMANT
     Indication: INSULIN-LIKE GROWTH FACTOR INCREASED
     Dosage: 30 MG, DAILY
     Route: 058
     Dates: start: 2005, end: 201812
  2. SOMAVERT [Suspect]
     Active Substance: PEGVISOMANT
     Dosage: 30 MG, DAILY
     Route: 058
     Dates: start: 2011
  3. SOMAVERT [Suspect]
     Active Substance: PEGVISOMANT
     Indication: ACROMEGALY
     Dosage: 30 MG, DAILY
     Route: 058
     Dates: start: 20190205
  4. SOMATULINE [Concomitant]
     Active Substance: LANREOTIDE ACETATE
     Indication: BLOOD GROWTH HORMONE INCREASED
     Dosage: 90 MG, MONTHLY
     Route: 058
     Dates: start: 2018

REACTIONS (7)
  - Blood growth hormone increased [Unknown]
  - Low density lipoprotein increased [Unknown]
  - Blood prolactin increased [Unknown]
  - High density lipoprotein decreased [Unknown]
  - Blood glucose increased [Unknown]
  - Drug ineffective [Unknown]
  - Red blood cell count decreased [Unknown]

NARRATIVE: CASE EVENT DATE: 20100506
